FAERS Safety Report 9172808 (Version 1)
Quarter: 2012Q4

REPORT INFORMATION
  Report Type: 
  Country: GB (occurrence: GB)
  Receive Date: 20120911
  Receipt Date: 20120911
  Transmission Date: 20130627
  Serious: Yes (Other)
  Sender: FDA-Public Use
  Company Number: GB-009507513-1202USA04089

PATIENT

DRUGS (4)
  1. DEXAMETHASONE TABLETS BP  2.0MG [Suspect]
     Indication: ACUTE LYMPHOCYTIC LEUKAEMIA
     Dosage: 6 mg/m2, qd
     Route: 048
  2. PEGASPARGASE [Suspect]
     Indication: ACUTE LYMPHOCYTIC LEUKAEMIA
     Dosage: 1000 units/m2 on days 4 and 18
     Route: 030
  3. VINCRISTINE SULFATE [Concomitant]
     Dosage: 1.5 mg/m2, QW
     Route: 042
  4. DAUNORUBICIN [Concomitant]
     Dosage: 25 mg/m2, UNK
     Route: 042

REACTIONS (2)
  - Hypertriglyceridaemia [Unknown]
  - Hyponatraemia [Unknown]
